FAERS Safety Report 18689779 (Version 1)
Quarter: 2020Q4

REPORT INFORMATION
  Report Type: Spontaneous
  Country: CH (occurrence: CH)
  Receive Date: 20201231
  Receipt Date: 20201231
  Transmission Date: 20210114
  Serious: Yes (Hospitalization, Other)
  Sender: FDA-Public Use
  Company Number: CH-ASTRAZENECA-2020SF75345

PATIENT
  Age: 80 Year
  Sex: Female

DRUGS (18)
  1. OVESTIN [Concomitant]
     Active Substance: ESTRIOL
     Route: 065
  2. RANEXA [Suspect]
     Active Substance: RANOLAZINE
     Dosage: DAILY
     Route: 065
     Dates: start: 201909, end: 20190920
  3. ASPIRIN CARDIO [Concomitant]
     Active Substance: ASPIRIN
     Route: 065
  4. APROVEL [Concomitant]
     Active Substance: IRBESARTAN
     Route: 065
     Dates: start: 20190916
  5. EUTHYROX [Concomitant]
     Active Substance: LEVOTHYROXINE SODIUM
     Route: 065
  6. LUVIT D3 [Concomitant]
     Active Substance: CHOLECALCIFEROL
     Route: 065
  7. ELIDEL [Concomitant]
     Active Substance: PIMECROLIMUS
     Route: 065
  8. NISULID [Suspect]
     Active Substance: NIMESULIDE
     Route: 065
     Dates: end: 20190912
  9. ANORO ELLIPTA [Concomitant]
     Active Substance: UMECLIDINIUM BROMIDE\VILANTEROL TRIFENATATE
     Route: 065
     Dates: end: 20190912
  10. DALACIN C [Suspect]
     Active Substance: CLINDAMYCIN
     Route: 048
     Dates: start: 20190903, end: 20190903
  11. XULTOPHY 100/3.6 [Suspect]
     Active Substance: INSULIN DEGLUDEC\LIRAGLUTIDE
     Route: 065
  12. OCULAC [Concomitant]
     Dosage: AS NECESSARY
     Route: 065
  13. RELVAR ELLIPTA [Concomitant]
     Active Substance: FLUTICASONE FUROATE\VILANTEROL TRIFENATATE
     Route: 065
     Dates: end: 20190912
  14. ISOKET [Concomitant]
     Active Substance: ISOSORBIDE DINITRATE
     Route: 065
     Dates: start: 20190912
  15. FEXOFENADINE [Concomitant]
     Active Substance: FEXOFENADINE HYDROCHLORIDE
     Dosage: AS NECESSSARY
     Route: 065
     Dates: end: 20190912
  16. OLOPATANOL [Concomitant]
     Route: 065
     Dates: end: 20190912
  17. ANTRAMUPS [Suspect]
     Active Substance: OMEPRAZOLE
     Route: 048
  18. SYMBICORT [Concomitant]
     Active Substance: BUDESONIDE\FORMOTEROL FUMARATE DIHYDRATE
     Dosage: AS NECESSARY
     Route: 065

REACTIONS (4)
  - Constipation [Recovered/Resolved]
  - Acute kidney injury [Recovered/Resolved]
  - Diarrhoea [Recovered/Resolved]
  - Asthenia [Recovered/Resolved]

NARRATIVE: CASE EVENT DATE: 201909
